FAERS Safety Report 25354516 (Version 1)
Quarter: 2025Q2

REPORT INFORMATION
  Report Type: Spontaneous
  Country: TW (occurrence: TW)
  Receive Date: 20250523
  Receipt Date: 20250523
  Transmission Date: 20250716
  Serious: Yes (Hospitalization)
  Sender: ABBVIE
  Company Number: TW-PFIZER INC-PV202500059648

PATIENT
  Age: 76 Year
  Sex: Male
  Weight: 61.5 kg

DRUGS (4)
  1. CEFTAROLINE FOSAMIL [Suspect]
     Active Substance: CEFTAROLINE FOSAMIL
     Indication: Infection
     Dosage: 600 MG, 2X/DAY (1 VIAL EVERY 12 HOURS)
     Route: 041
     Dates: start: 20250404, end: 20250412
  2. EXFORGE [Concomitant]
     Active Substance: AMLODIPINE BESYLATE\VALSARTAN
     Indication: Product used for unknown indication
  3. MINOCYCLINE [Concomitant]
     Active Substance: MINOCYCLINE HYDROCHLORIDE
     Indication: Cellulitis
     Dosage: 1 V EVERY 12 HOURS
     Dates: start: 20250406, end: 20250407
  4. BETAHISTINE [Concomitant]
     Active Substance: BETAHISTINE
     Indication: Product used for unknown indication

REACTIONS (2)
  - Drug eruption [Recovered/Resolved]
  - Vestibular migraine [Unknown]

NARRATIVE: CASE EVENT DATE: 20250409
